FAERS Safety Report 5246914-4 (Version None)
Quarter: 2007Q1

REPORT INFORMATION
  Report Type: 
  Country: None (occurrence: None)
  Receive Date: 20070226
  Receipt Date: 20070214
  Transmission Date: 20070707
  Serious: Yes (Other)
  Sender: FDA-Public Use
  Company Number: DZ-PFIZER INC-2007005728

PATIENT
  Age: 82 Year
  Sex: Male

DRUGS (6)
  1. CELEBREX [Suspect]
     Indication: BACK PAIN
     Route: 048
     Dates: start: 20061221, end: 20061231
  2. CELEBREX [Suspect]
     Indication: SCIATICA
  3. ANALGESICS [Concomitant]
     Route: 048
  4. VITAMIN B6 [Concomitant]
     Route: 048
  5. THIAMINE HCL [Concomitant]
     Route: 048
  6. ANTIHYPERTENSIVES [Concomitant]

REACTIONS (1)
  - CARDIAC DISORDER [None]
